FAERS Safety Report 7338255-6 (Version None)
Quarter: 2011Q1

REPORT INFORMATION
  Report Type: 
  Country: None (occurrence: None)
  Receive Date: 20110308
  Receipt Date: 20110225
  Transmission Date: 20110831
  Serious: Yes (Hospitalization)
  Sender: FDA-Public Use
  Company Number: IN-ELI_LILLY_AND_COMPANY-IN200805000536

PATIENT
  Sex: Female
  Weight: 58 kg

DRUGS (15)
  1. DEXAMETHASONE [Concomitant]
     Dosage: UNK, UNKNOWN
     Route: 065
     Dates: start: 20080326, end: 20080326
  2. RANITIDINE [Concomitant]
     Dosage: UNK, UNKNOWN
     Route: 065
     Dates: start: 20080326, end: 20080401
  3. SETRON [Concomitant]
     Dosage: UNK, UNKNOWN
     Route: 065
     Dates: start: 20080402, end: 20080402
  4. BISPHOSPHONATES [Concomitant]
     Dosage: UNK, UNKNOWN
     Route: 065
     Dates: start: 20080327, end: 20080327
  5. DUPHALAC [Concomitant]
     Dosage: UNK, UNKNOWN
     Route: 065
     Dates: start: 20080328, end: 20080408
  6. GEMCITABINE HYDROCHLORIDE [Suspect]
     Indication: BREAST CANCER
     Dosage: 1000 MG/M2, OTHER DAY 1+8 EVERY 3 WEEKS
     Route: 042
     Dates: start: 20080326
  7. FUROSEMIDE [Concomitant]
     Dosage: UNK, UNKNOWN
     Route: 065
     Dates: start: 20080402, end: 20080402
  8. DEXAMETHASONE [Concomitant]
     Dosage: UNK, UNKNOWN
     Route: 065
     Dates: start: 20080402, end: 20080402
  9. FUROSEMIDE [Concomitant]
     Dosage: UNK, UNKNOWN
     Route: 065
     Dates: start: 20080326, end: 20080326
  10. ACTRAPID HUMAN [Concomitant]
     Dosage: UNK, UNKNOWN
     Route: 065
     Dates: start: 20080326, end: 20080326
  11. SETRON [Concomitant]
     Dosage: UNK, UNKNOWN
     Route: 065
     Dates: start: 20080326, end: 20080326
  12. RINGER'S [Concomitant]
     Dosage: UNK, UNKNOWN
     Route: 065
     Dates: start: 20080326, end: 20080326
  13. RINGER'S [Concomitant]
     Dosage: UNK, UNKNOWN
     Route: 065
     Dates: start: 20080402, end: 20080402
  14. VINFLUNINE [Suspect]
     Indication: BREAST CANCER
     Dosage: 320 MG/M2, OTHER DAY ONE EVERY 3 WEEKS
     Route: 042
     Dates: start: 20080326
  15. RANITIDINE [Concomitant]
     Dosage: UNK, UNKNOWN
     Route: 065
     Dates: start: 20080402, end: 20080406

REACTIONS (2)
  - HYPERGLYCAEMIA [None]
  - LOCALISED INFECTION [None]
